FAERS Safety Report 11888750 (Version 1)
Quarter: 2016Q1

REPORT INFORMATION
  Report Type: Spontaneous
  Country: US (occurrence: None)
  Receive Date: 20160104
  Receipt Date: 20160104
  Transmission Date: 20160526
  Serious: Yes (Other)
  Sender: FDA-Public Use
  Company Number: None

PATIENT
  Age: 21 Year
  Sex: Male
  Weight: 58.97 kg

DRUGS (1)
  1. BENZONATATE. [Suspect]
     Active Substance: BENZONATATE
     Indication: COUGH
     Route: 048
     Dates: start: 20151230, end: 20160102

REACTIONS (4)
  - Drug prescribing error [None]
  - Mood swings [None]
  - Animal bite [None]
  - Aggression [None]

NARRATIVE: CASE EVENT DATE: 20160101
